FAERS Safety Report 7611598-4 (Version None)
Quarter: 2011Q3

REPORT INFORMATION
  Report Type: 
  Country: None (occurrence: None)
  Receive Date: 20110715
  Receipt Date: 20110629
  Transmission Date: 20111222
  Serious: Yes (Hospitalization)
  Sender: FDA-Public Use
  Company Number: JP-GLAXOSMITHKLINE-B0730480A

PATIENT
  Sex: Female

DRUGS (5)
  1. PAXIL [Suspect]
     Indication: DEPRESSION
     Dosage: 30MG PER DAY
     Route: 048
     Dates: end: 20110627
  2. ZOLPIDEM [Concomitant]
     Dosage: 10MG PER DAY
     Route: 048
  3. MEILAX [Concomitant]
     Dosage: 2MG PER DAY
     Route: 048
  4. LEXOTAN [Concomitant]
     Dosage: 2MG PER DAY
     Route: 048
  5. ROHYPNOL [Concomitant]
     Dosage: 1MG PER DAY
     Route: 048

REACTIONS (5)
  - HYPERREFLEXIA [None]
  - SWEAT GLAND DISORDER [None]
  - MYOCLONUS [None]
  - SEROTONIN SYNDROME [None]
  - BLOOD CREATINE PHOSPHOKINASE INCREASED [None]
